FAERS Safety Report 9314909 (Version 2)
Quarter: 2013Q3

REPORT INFORMATION
  Report Type: Spontaneous
  Country: GB (occurrence: GB)
  Receive Date: 20130529
  Receipt Date: 20130810
  Transmission Date: 20140515
  Serious: Yes (Death)
  Sender: FDA-Public Use
  Company Number: GB-TEVA-407943ISR

PATIENT
  Age: 49 Year
  Sex: Male
  Weight: 72 kg

DRUGS (3)
  1. CITALOPRAM [Suspect]
     Indication: DEPRESSION
     Dosage: 40 MILLIGRAM DAILY;
     Route: 048
  2. PARACETAMOL [Concomitant]
  3. ALCOHOL [Concomitant]

REACTIONS (1)
  - Toxicity to various agents [Fatal]
